FAERS Safety Report 14180628 (Version 1)
Quarter: 2017Q4

REPORT INFORMATION
  Report Type: Spontaneous
  Country: GB (occurrence: GB)
  Receive Date: 20171111
  Receipt Date: 20171111
  Transmission Date: 20180321
  Serious: Yes (Other)
  Sender: FDA-Public Use
  Company Number: GB-TEVA-822757ACC

PATIENT
  Age: 6 Year
  Sex: Male
  Weight: 17 kg

DRUGS (8)
  1. DERMOL [Concomitant]
     Active Substance: BENZALKONIUM CHLORIDE\CHLORHEXIDINE HYDROCHLORIDE\ISOPROPYL MYRISTATE\PARAFFIN
     Dosage: USE AS DIRECTED
     Dates: start: 20170516
  2. HYDROCORTISONE. [Concomitant]
     Active Substance: HYDROCORTISONE
     Dosage: 2 DOSAGE FORMS DAILY;
     Dates: start: 20170516
  3. SILVER NITRATE. [Concomitant]
     Active Substance: SILVER NITRATE
     Dosage: USE AS DIRECTED
     Dates: start: 20170516
  4. MOVICOL [Concomitant]
     Active Substance: POLYETHYLENE GLYCOL 3350\POTASSIUM CHLORIDE\SODIUM BICARBONATE\SODIUM CHLORIDE
     Dosage: USE AS DIRECTED
     Dates: start: 20170516
  5. OMEPRAZOLE. [Concomitant]
     Active Substance: OMEPRAZOLE
     Dosage: 5 ML DAILY;
     Dates: start: 20170516
  6. CO-AMOXICLAV [Suspect]
     Active Substance: AMOXICILLIN\CLAVULANIC ACID
     Dates: start: 20171024
  7. CLARITHROMYCIN. [Concomitant]
     Active Substance: CLARITHROMYCIN
     Dosage: 1X5ML SPOON EVERY 12 HRS  FOR 5 DAYS
     Dates: start: 20171023
  8. ACIDEX [Concomitant]
     Active Substance: CALCIUM CARBONATE\SODIUM ALGINATE\SODIUM BICARBONATE
     Dosage: 2.5-5ML SPOON AFTER MEALS VIA PEG AND AT BEDTIM...
     Dates: start: 20170516

REACTIONS (1)
  - Lip ulceration [Recovering/Resolving]

NARRATIVE: CASE EVENT DATE: 20171024
